FAERS Safety Report 17810978 (Version 1)
Quarter: 2020Q2

REPORT INFORMATION
  Report Type: Spontaneous
  Country: US (occurrence: US)
  Receive Date: 20200520
  Receipt Date: 20200520
  Transmission Date: 20200714
  Serious: No
  Sender: FDA-Public Use
  Company Number: None

PATIENT
  Age: 77 Year
  Sex: Male
  Weight: 104 kg

DRUGS (13)
  1. THIAMINE. [Concomitant]
     Active Substance: THIAMINE
     Dates: start: 20200512
  2. CISATRACURIUM. [Concomitant]
     Active Substance: CISATRACURIUM
     Dates: start: 20200518
  3. REMDESIVIR. [Suspect]
     Active Substance: REMDESIVIR
     Indication: COVID-19 PNEUMONIA
     Route: 041
     Dates: start: 20200514, end: 20200520
  4. VITAMIN C [Concomitant]
     Active Substance: ASCORBIC ACID
     Dates: start: 20200512
  5. PEPCID [Concomitant]
     Active Substance: FAMOTIDINE
     Dates: start: 20200513
  6. PRECEDEX [Concomitant]
     Active Substance: DEXMEDETOMIDINE HYDROCHLORIDE
     Dates: start: 20200517
  7. ROCURONIUM [Concomitant]
     Active Substance: ROCURONIUM BROMIDE
     Dates: start: 20200517
  8. TOCILIZUMAB. [Concomitant]
     Active Substance: TOCILIZUMAB
     Dates: start: 20200519, end: 20200519
  9. LINEZOLID. [Concomitant]
     Active Substance: LINEZOLID
     Dates: start: 20200517
  10. ZINC. [Concomitant]
     Active Substance: ZINC
     Dates: start: 20200513
  11. FENTANYL. [Concomitant]
     Active Substance: FENTANYL
     Dates: start: 20200516
  12. PROPOFOL. [Concomitant]
     Active Substance: PROPOFOL
     Dates: start: 20200516
  13. ENOXAPARIN [Concomitant]
     Active Substance: ENOXAPARIN
     Dates: start: 20200512

REACTIONS (2)
  - Blood creatine increased [None]
  - Haemofiltration [None]

NARRATIVE: CASE EVENT DATE: 20200520
